FAERS Safety Report 24268760 (Version 3)
Quarter: 2024Q4

REPORT INFORMATION
  Report Type: Spontaneous
  Country: US (occurrence: US)
  Receive Date: 20240830
  Receipt Date: 20241029
  Transmission Date: 20250115
  Serious: Yes (Death, Life-Threatening, Hospitalization, Disabling, Other)
  Sender: PFIZER
  Company Number: US-PFIZER INC-202400244901

PATIENT
  Age: 73 Year
  Sex: Female
  Weight: 85.261 kg

DRUGS (1)
  1. VYNDAMAX [Suspect]
     Active Substance: TAFAMIDIS
     Indication: Cardiac amyloidosis
     Dosage: 61 MG, DAILY USUALLY IN MORNING
     Route: 048
     Dates: start: 2022, end: 20240803

REACTIONS (8)
  - Atrioventricular block complete [Fatal]
  - Myocardial infarction [Fatal]
  - Cardiac pacemaker insertion [Fatal]
  - Cardiac arrest [Fatal]
  - Renal failure [Not Recovered/Not Resolved]
  - Fall [Recovering/Resolving]
  - Lower limb fracture [Recovering/Resolving]
  - Weight increased [Unknown]

NARRATIVE: CASE EVENT DATE: 20240501
